FAERS Safety Report 9808228 (Version 1)
Quarter: 2014Q1

REPORT INFORMATION
  Report Type: Report from Study
  Country: US (occurrence: US)
  Receive Date: 20140110
  Receipt Date: 20140110
  Transmission Date: 20141002
  Serious: Yes (Hospitalization)
  Sender: FDA-Public Use
  Company Number: US-US-EMD SERONO, INC.-7261575

PATIENT
  Age: 44 Year
  Sex: Female

DRUGS (1)
  1. REBIF [Suspect]
     Indication: PRODUCT USED FOR UNKNOWN INDICATION
     Route: 058
     Dates: start: 20110126

REACTIONS (9)
  - Bronchitis [Unknown]
  - Oesophageal spasm [Unknown]
  - Influenza [Unknown]
  - Immune system disorder [Not Recovered/Not Resolved]
  - Abnormal clotting factor [Unknown]
  - Liver function test abnormal [Unknown]
  - Thyroid function test abnormal [Unknown]
  - Mood swings [Unknown]
  - Depression [Unknown]
